FAERS Safety Report 21867934 (Version 2)
Quarter: 2023Q1

REPORT INFORMATION
  Report Type: Spontaneous
  Country: US (occurrence: US)
  Receive Date: 20230116
  Receipt Date: 20230306
  Transmission Date: 20230417
  Serious: Yes (Other)
  Sender: FDA-Public Use
  Company Number: US-JAZZ-2023-US-000545

PATIENT
  Age: 41 Year
  Sex: Male

DRUGS (1)
  1. XYREM [Suspect]
     Active Substance: SODIUM OXYBATE
     Indication: Product used for unknown indication
     Dosage: UNK
     Route: 048

REACTIONS (11)
  - Depressed level of consciousness [Recovered/Resolved]
  - Hypothermia [Recovered/Resolved]
  - Unresponsive to stimuli [Unknown]
  - Confusional state [Recovered/Resolved]
  - Tremor [Recovered/Resolved]
  - Muscle twitching [Unknown]
  - Disorientation [Unknown]
  - Somnolence [Unknown]
  - Snoring [Unknown]
  - Drug screen positive [Unknown]
  - Intentional product misuse [Unknown]
